FAERS Safety Report 22680424 (Version 5)
Quarter: 2025Q2

REPORT INFORMATION
  Report Type: Report from Study
  Country: BR (occurrence: BR)
  Receive Date: 20230707
  Receipt Date: 20250501
  Transmission Date: 20250717
  Serious: Yes (Hospitalization, Other)
  Sender: TAKEDA
  Company Number: BR-TAKEDA-2023TUS045423

PATIENT
  Age: 45 Year
  Sex: Female

DRUGS (1)
  1. VEDOLIZUMAB [Suspect]
     Active Substance: VEDOLIZUMAB
     Indication: Colitis ulcerative

REACTIONS (6)
  - Colitis ulcerative [Unknown]
  - Inappropriate schedule of product administration [Unknown]
  - Product availability issue [Unknown]
  - Malaise [Unknown]
  - Vomiting [Unknown]
  - Pyrexia [Unknown]

NARRATIVE: CASE EVENT DATE: 20230307
